FAERS Safety Report 6878061-X (Version None)
Quarter: 2010Q3

REPORT INFORMATION
  Report Type: 
  Country: None (occurrence: None)
  Receive Date: 20100727
  Receipt Date: 20100719
  Transmission Date: 20110219
  Serious: Yes (Other)
  Sender: FDA-Public Use
  Company Number: US-B.I. PHARMACEUTICALS,INC./RIDGEFIELD-2010-BP-08184BP

PATIENT
  Sex: Male

DRUGS (2)
  1. SPIRIVA [Suspect]
     Dosage: 18 MCG
     Dates: end: 20100601
  2. SPIRIVA [Suspect]
     Dates: start: 20100601

REACTIONS (2)
  - ANEURYSM [None]
  - DYSPNOEA [None]
